FAERS Safety Report 8048901-X (Version None)
Quarter: 2012Q1

REPORT INFORMATION
  Report Type: 
  Country: None (occurrence: None)
  Receive Date: 20120117
  Receipt Date: 20120111
  Transmission Date: 20120608
  Serious: Yes (Hospitalization)
  Sender: FDA-Public Use
  Company Number: US-GILEAD-2012-0048924

PATIENT
  Sex: Female

DRUGS (5)
  1. TYVASO [Concomitant]
  2. LETAIRIS [Suspect]
     Indication: SCLERODERMA
  3. LETAIRIS [Suspect]
     Indication: MITRAL VALVE DISEASE
  4. ADCIRCA [Concomitant]
  5. LETAIRIS [Suspect]
     Indication: PULMONARY HYPERTENSION
     Dosage: 10 MG, UNK
     Route: 048
     Dates: start: 20100105

REACTIONS (2)
  - SPINAL FUSION SURGERY [None]
  - SPINAL LAMINECTOMY [None]
